FAERS Safety Report 11875539 (Version 4)
Quarter: 2016Q2

REPORT INFORMATION
  Report Type: Spontaneous
  Country: US (occurrence: US)
  Receive Date: 20151229
  Receipt Date: 20160418
  Transmission Date: 20160815
  Serious: Yes (Other)
  Sender: FDA-Public Use
  Company Number: US-PFIZER INC-2015456068

PATIENT
  Age: 63 Year
  Sex: Female

DRUGS (6)
  1. BACTRIM [Suspect]
     Active Substance: SULFAMETHOXAZOLE\TRIMETHOPRIM
     Indication: URINARY TRACT INFECTION
     Dosage: UNK
  2. VITAMIN C [Concomitant]
     Active Substance: ASCORBIC ACID
     Indication: URINARY TRACT INFECTION
     Dosage: 500 MG, DAILY
     Route: 048
     Dates: start: 2014
  3. PREMARIN [Suspect]
     Active Substance: ESTROGENS, CONJUGATED
     Indication: VULVOVAGINAL DRYNESS
     Dosage: 0.5 G, 1X/DAY
     Dates: start: 201507, end: 201508
  4. SULFAMETH/TMP DS TAB [Suspect]
     Active Substance: SULFAMETHOXAZOLE\TRIMETHOPRIM
     Indication: URINARY TRACT INFECTION
     Dosage: UNK
  5. METHENAMINE HIPPURATE. [Concomitant]
     Active Substance: METHENAMINE HIPPURATE
     Indication: URINARY TRACT INFECTION
     Dosage: 1 G, 2X/DAY
     Route: 048
     Dates: start: 2014
  6. PREMARIN [Suspect]
     Active Substance: ESTROGENS, CONJUGATED
     Indication: URINARY TRACT INFECTION
     Dosage: 0.5 G, 1X/DAY
     Dates: start: 201508, end: 20151216

REACTIONS (12)
  - Urinary tract infection [Unknown]
  - Pharyngeal oedema [Unknown]
  - Pruritus [Not Recovered/Not Resolved]
  - Erythema [Not Recovered/Not Resolved]
  - Vulvovaginal pruritus [Not Recovered/Not Resolved]
  - Reaction to drug excipients [Not Recovered/Not Resolved]
  - Hypersensitivity [Unknown]
  - Insomnia [Not Recovered/Not Resolved]
  - Dyspnoea [Unknown]
  - Swelling face [Unknown]
  - Incorrect dose administered [Unknown]
  - Scratch [Unknown]

NARRATIVE: CASE EVENT DATE: 201508
